FAERS Safety Report 8920683 (Version 4)
Quarter: 2013Q2

REPORT INFORMATION
  Report Type: Report from Study
  Country: JP (occurrence: JP)
  Receive Date: 20121121
  Receipt Date: 20130415
  Transmission Date: 20140414
  Serious: Yes (Hospitalization, Other)
  Sender: FDA-Public Use
  Company Number: JP-009507513-2012SP018409

PATIENT
  Age: 42 Year
  Sex: Female
  Weight: 48 kg

DRUGS (13)
  1. PEGINTERFERON ALFA-2B [Suspect]
     Indication: CHRONIC HEPATITIS C
     Dosage: 1.5 MICROGRAM PER KILOGRAM, QW
     Route: 058
     Dates: start: 20120124, end: 20120319
  2. PEGINTERFERON ALFA-2B [Suspect]
     Dosage: 1.5 MICROGRAM PER KILOGRAM, QW
     Route: 058
     Dates: start: 20120403, end: 20120501
  3. PEGINTERFERON ALFA-2B [Suspect]
     Dosage: 1.7 MICROGRAM PER KILOGRAM, QW
     Route: 058
     Dates: start: 20120507
  4. REBETOL [Suspect]
     Indication: CHRONIC HEPATITIS C
     Dosage: 400 MG, QD
     Route: 048
     Dates: start: 20120124, end: 20120322
  5. REBETOL [Suspect]
     Dosage: 400 MG, QD
     Route: 048
     Dates: start: 20120406
  6. TELAVIC [Suspect]
     Indication: CHRONIC HEPATITIS C
     Dosage: 1500 MG, QD
     Route: 048
     Dates: start: 20120124, end: 20120322
  7. LOXOPROFEN [Suspect]
     Dosage: 3 TABLET, PRN
     Route: 048
     Dates: start: 20120319, end: 20120322
  8. VOLTAREN [Suspect]
     Dosage: 3 SUPPOSITORY, PRN
     Route: 054
     Dates: start: 20120319, end: 20120322
  9. THYRADIN-S [Concomitant]
     Indication: HYPOTHYROIDISM
     Dosage: 25 MG, QD
     Route: 048
  10. FEROTYM [Concomitant]
     Indication: IRON DEFICIENCY ANAEMIA
     Dosage: 50 MG, QD
     Route: 048
  11. XYZAL [Concomitant]
     Indication: PROPHYLAXIS
     Dosage: 5 MG, QD
     Route: 048
     Dates: start: 20120124
  12. CALONAL [Concomitant]
     Indication: PROPHYLAXIS
     Dosage: 600 MG, QD
     Route: 048
     Dates: start: 20120124, end: 20120318
  13. DERMOVATE [Concomitant]
     Indication: PROPHYLAXIS
     Dosage: QS, QD
     Route: 061
     Dates: start: 20120124

REACTIONS (5)
  - Drug reaction with eosinophilia and systemic symptoms [Recovered/Resolved]
  - Pyrexia [Recovered/Resolved]
  - Abdominal pain [Recovered/Resolved]
  - Pyrexia [Recovering/Resolving]
  - White blood cell count decreased [Recovering/Resolving]
